FAERS Safety Report 7231182-4 (Version None)
Quarter: 2011Q1

REPORT INFORMATION
  Report Type: 
  Country: None (occurrence: None)
  Receive Date: 20110118
  Receipt Date: 20110111
  Transmission Date: 20110831
  Serious: Yes (Other)
  Sender: FDA-Public Use
  Company Number: A0902228A

PATIENT
  Age: 50 Year
  Sex: Male

DRUGS (2)
  1. PROMACTA [Suspect]
     Indication: IDIOPATHIC THROMBOCYTOPENIC PURPURA
     Dosage: 50MG PER DAY
     Route: 048
     Dates: start: 20100601, end: 20100726
  2. RITUXIMAB [Concomitant]

REACTIONS (2)
  - MENTAL DISORDER [None]
  - IDIOPATHIC THROMBOCYTOPENIC PURPURA [None]
